FAERS Safety Report 6621929-X (Version None)
Quarter: 2010Q1

REPORT INFORMATION
  Report Type: 
  Country: None (occurrence: None)
  Receive Date: 20100309
  Receipt Date: 20100222
  Transmission Date: 20100710
  Serious: Yes (Hospitalization)
  Sender: FDA-Public Use
  Company Number: IE-GENENTECH-298917

PATIENT
  Sex: Female
  Weight: 53 kg

DRUGS (8)
  1. XOLAIR [Suspect]
     Indication: BRONCHOPULMONARY ASPERGILLOSIS ALLERGIC
     Dosage: 300 MG, Q2W
     Route: 058
     Dates: start: 20090501, end: 20100101
  2. INSULIN [Concomitant]
     Indication: DIABETES MELLITUS
  3. LANTUS [Concomitant]
     Indication: DIABETES MELLITUS
  4. APIDRA [Concomitant]
     Indication: DIABETES MELLITUS
  5. STEROIDS NOS [Concomitant]
     Indication: DRUG USE FOR UNKNOWN INDICATION
  6. ANTIBIOTICS (NOT SPECIFIED) [Concomitant]
     Indication: DRUG USE FOR UNKNOWN INDICATION
  7. VITAMINS [Concomitant]
     Indication: DRUG USE FOR UNKNOWN INDICATION
  8. SPORANOX [Concomitant]
     Indication: DRUG USE FOR UNKNOWN INDICATION

REACTIONS (4)
  - BLOOD IMMUNOGLOBULIN E INCREASED [None]
  - DIABETES MELLITUS [None]
  - INSULIN RESISTANCE [None]
  - WEIGHT DECREASED [None]
